FAERS Safety Report 11769672 (Version 2)
Quarter: 2016Q1

REPORT INFORMATION
  Report Type: Spontaneous
  Country: DK (occurrence: DK)
  Receive Date: 20151123
  Receipt Date: 20160126
  Transmission Date: 20160525
  Serious: Yes (Congenital Anomaly)
  Sender: FDA-Public Use
  Company Number: DK-PFIZER INC-2015397327

PATIENT
  Sex: Male

DRUGS (2)
  1. METFORMIN ACTAVIS [Concomitant]
     Active Substance: METFORMIN HYDROCHLORIDE
     Indication: DIABETES MELLITUS
  2. DEPO-MEDROL [Suspect]
     Active Substance: METHYLPREDNISOLONE ACETATE
     Indication: KELOID SCAR
     Dosage: 20 MG (40 MG/ML, 0.5 ML), SINGLE
     Route: 064
     Dates: start: 20121129, end: 20121129

REACTIONS (2)
  - VACTERL syndrome [Not Recovered/Not Resolved]
  - Maternal exposure during pregnancy [Not Recovered/Not Resolved]
